FAERS Safety Report 18066949 (Version 2)
Quarter: 2020Q3

REPORT INFORMATION
  Report Type: Report from Study
  Country: ES (occurrence: ES)
  Receive Date: 20200724
  Receipt Date: 20200925
  Transmission Date: 20201103
  Serious: Yes (Death, Other)
  Sender: FDA-Public Use
  Company Number: ES-PFIZER INC-2020280474

PATIENT
  Sex: Female

DRUGS (6)
  1. AVIBACTAM SODIUM/CEFTAZIDIME PENTAHYDRATE [Suspect]
     Active Substance: AVIBACTAM SODIUM\CEFTAZIDIME
     Indication: ABDOMINAL INFECTION
     Dosage: 1 G (2G/0.5G 24HRS)
     Route: 042
     Dates: start: 20140929, end: 20141011
  2. GENTAMICIN. [Suspect]
     Active Substance: GENTAMICIN
     Indication: KLEBSIELLA INFECTION
     Dosage: 5 MG/KG, DAILY, (SINGLE DAILY DOSE OF 5 MG/KG AND ADJUSTED ACCORDING TO BLOOD LEVEL CONCENTRATIONS)
     Route: 042
     Dates: start: 20140917, end: 20141006
  3. GENTAMICIN. [Suspect]
     Active Substance: GENTAMICIN
     Indication: ABDOMINAL INFECTION
  4. TIGECYCLINE. [Suspect]
     Active Substance: TIGECYCLINE
     Indication: ABDOMINAL INFECTION
     Dosage: 100 MG, 2X/DAY, (FOLLOWED BY 100 MG/ 12 HOURS)
  5. TIGECYCLINE. [Suspect]
     Active Substance: TIGECYCLINE
     Indication: KLEBSIELLA INFECTION
     Dosage: 200 MG, 2X/DAY, (DOUBLE DOSE, LOADING DOSE)
  6. AVIBACTAM SODIUM/CEFTAZIDIME PENTAHYDRATE [Suspect]
     Active Substance: AVIBACTAM SODIUM\CEFTAZIDIME
     Indication: KLEBSIELLA INFECTION
     Dosage: 2.5 G, 3X/DAY (2.5 G  (EVERY 8 HOURS, ADMINISTERED  IN A 2 HOUR INFUSSION)
     Route: 042
     Dates: start: 20140919, end: 20140929

REACTIONS (1)
  - Acute kidney injury [Unknown]
